FAERS Safety Report 6891689-6 (Version None)
Quarter: 2010Q3

REPORT INFORMATION
  Report Type: 
  Country: None (occurrence: None)
  Receive Date: 20100731
  Receipt Date: 20070904
  Transmission Date: 20110219
  Serious: Yes (Other)
  Sender: FDA-Public Use
  Company Number: US-PFIZER INC-2007074728

PATIENT
  Sex: Female
  Weight: 83.9 kg

DRUGS (13)
  1. NEURONTIN [Suspect]
     Indication: NEUROPATHY PERIPHERAL
  2. NEURONTIN [Suspect]
     Indication: BIPOLAR DISORDER
  3. NEURONTIN [Suspect]
     Indication: BIPOLAR I DISORDER
  4. GABAPENTIN [Suspect]
     Indication: NEUROPATHY PERIPHERAL
  5. GABAPENTIN [Suspect]
     Indication: BIPOLAR DISORDER
  6. GABAPENTIN [Suspect]
     Indication: BIPOLAR I DISORDER
  7. GABAPENTIN [Suspect]
  8. GABAPENTIN [Suspect]
  9. GABAPENTIN [Suspect]
  10. NAPROXEN [Concomitant]
  11. THIAMINE [Concomitant]
  12. FOLIC ACID [Concomitant]
  13. LORATADINE [Concomitant]

REACTIONS (9)
  - BODY HEIGHT DECREASED [None]
  - HYPOAESTHESIA [None]
  - MUSCLE TWITCHING [None]
  - NERVOUSNESS [None]
  - NEURALGIA [None]
  - SOMNOLENCE [None]
  - VISUAL IMPAIRMENT [None]
  - WEIGHT FLUCTUATION [None]
  - WEIGHT INCREASED [None]
